FAERS Safety Report 9671364 (Version 1)
Quarter: 2013Q4

REPORT INFORMATION
  Report Type: Spontaneous
  Country: US (occurrence: US)
  Receive Date: 20131106
  Receipt Date: 20131106
  Transmission Date: 20140711
  Serious: No
  Sender: FDA-Public Use
  Company Number: US-ABBVIE-13P-163-1145229-00

PATIENT
  Sex: Male
  Weight: 80.36 kg

DRUGS (1)
  1. TRICOR [Suspect]
     Indication: BLOOD TRIGLYCERIDES INCREASED
     Dates: start: 2009

REACTIONS (2)
  - Anger [Recovered/Resolved]
  - Wrong patient received medication [Unknown]
